FAERS Safety Report 12481685 (Version 1)
Quarter: 2016Q2

REPORT INFORMATION
  Report Type: Spontaneous
  Country: US (occurrence: US)
  Receive Date: 20160620
  Receipt Date: 20160620
  Transmission Date: 20160815
  Serious: No
  Sender: FDA-Public Use
  Company Number: US-B.I. PHARMACEUTICALS,INC./RIDGEFIELD-2016-BI-36523BP

PATIENT
  Age: 75 Year
  Sex: Male

DRUGS (8)
  1. POTASSIUM CHLORIDE. [Concomitant]
     Active Substance: POTASSIUM CHLORIDE
     Indication: ELECTROLYTE SUBSTITUTION THERAPY
     Route: 065
     Dates: start: 2015
  2. VYTORIN [Concomitant]
     Active Substance: EZETIMIBE\SIMVASTATIN
     Indication: PRODUCT USED FOR UNKNOWN INDICATION
     Route: 065
  3. ASPIRIN. [Concomitant]
     Active Substance: ASPIRIN
     Indication: CARDIAC DISORDER
     Dosage: 81 MG
     Route: 048
  4. OFEV [Suspect]
     Active Substance: NINTEDANIB
     Dosage: 50 MG
     Route: 048
     Dates: start: 201602, end: 201606
  5. OFEV [Suspect]
     Active Substance: NINTEDANIB
     Indication: IDIOPATHIC PULMONARY FIBROSIS
     Dosage: 150 MG
     Route: 048
     Dates: start: 201509
  6. ALBUTEROL. [Concomitant]
     Active Substance: ALBUTEROL
     Indication: DYSPNOEA
     Route: 055
     Dates: start: 2010
  7. FLUTICASONE [Concomitant]
     Active Substance: FLUTICASONE\FLUTICASONE PROPIONATE
     Indication: SINUSITIS
     Dosage: NASAL SPRAY
     Route: 065
  8. PREDNISONE. [Concomitant]
     Active Substance: PREDNISONE
     Indication: PRODUCT USED FOR UNKNOWN INDICATION
     Route: 065

REACTIONS (3)
  - Eating disorder [Not Recovered/Not Resolved]
  - Hypersomnia [Not Recovered/Not Resolved]
  - Refusal of treatment by patient [Not Recovered/Not Resolved]

NARRATIVE: CASE EVENT DATE: 20160523
